FAERS Safety Report 7583500-5 (Version None)
Quarter: 2011Q2

REPORT INFORMATION
  Report Type: 
  Country: None (occurrence: None)
  Receive Date: 20110630
  Receipt Date: 20110628
  Transmission Date: 20111010
  Serious: Yes (Other)
  Sender: FDA-Public Use
  Company Number: A0933398A

PATIENT
  Age: 28 Year
  Sex: Female
  Weight: 57 kg

DRUGS (3)
  1. NICOTINE [Suspect]
     Indication: SMOKING CESSATION THERAPY
     Dosage: 21MG UNKNOWN
     Route: 062
     Dates: start: 20110624, end: 20110626
  2. TOPAMAX [Concomitant]
  3. IMITREX [Concomitant]

REACTIONS (7)
  - HEART RATE IRREGULAR [None]
  - APPLICATION SITE PRURITUS [None]
  - CONDITION AGGRAVATED [None]
  - APPLICATION SITE ERYTHEMA [None]
  - DIZZINESS [None]
  - SPEECH DISORDER [None]
  - CONVULSION [None]
